FAERS Safety Report 23388261 (Version 1)
Quarter: 2024Q1

REPORT INFORMATION
  Report Type: Spontaneous
  Country: US (occurrence: None)
  Receive Date: 20240110
  Receipt Date: 20240110
  Transmission Date: 20240410
  Serious: Yes (Disabling)
  Sender: FDA-Public Use
  Company Number: None

PATIENT
  Age: 38 Year
  Sex: Male
  Weight: 89.1 kg

DRUGS (1)
  1. SERTRALINE [Suspect]
     Active Substance: SERTRALINE HYDROCHLORIDE
     Indication: Anxiety
     Dates: start: 20190601, end: 20230604

REACTIONS (4)
  - Hypoaesthesia [None]
  - Loss of libido [None]
  - Visual impairment [None]
  - Anhedonia [None]

NARRATIVE: CASE EVENT DATE: 20230604
